FAERS Safety Report 5608743-9 (Version None)
Quarter: 2008Q1

REPORT INFORMATION
  Report Type: 
  Country: None (occurrence: None)
  Receive Date: 20080129
  Receipt Date: 20080129
  Transmission Date: 20080703
  Serious: Yes (Hospitalization)
  Sender: FDA-Public Use
  Company Number: None

PATIENT
  Sex: Male
  Weight: 82.2 kg

DRUGS (2)
  1. CARBOPLATIN [Suspect]
     Dosage: 635 MG
  2. ALIMTA [Suspect]

REACTIONS (2)
  - PANCYTOPENIA [None]
  - RADIATION OESOPHAGITIS [None]
